FAERS Safety Report 23027185 (Version 1)
Quarter: 2023Q4

REPORT INFORMATION
  Report Type: Spontaneous
  Country: GB (occurrence: GB)
  Receive Date: 20231004
  Receipt Date: 20231004
  Transmission Date: 20240110
  Serious: Yes (Hospitalization)
  Sender: FDA-Public Use
  Company Number: GB-ANIPHARMA-2023-UK-000286

PATIENT
  Sex: Female
  Weight: 83 kg

DRUGS (2)
  1. CANDESARTAN [Suspect]
     Active Substance: CANDESARTAN
     Indication: Hypertension
     Route: 065
  2. NITROFURANTOIN [Concomitant]
     Active Substance: NITROFURANTOIN
     Route: 065

REACTIONS (5)
  - Hyponatraemia [Recovering/Resolving]
  - Abdominal pain [Unknown]
  - Confusional state [Unknown]
  - Illness [Unknown]
  - Generalised tonic-clonic seizure [Unknown]
